FAERS Safety Report 8037418-4 (Version None)
Quarter: 2012Q1

REPORT INFORMATION
  Report Type: 
  Country: None (occurrence: None)
  Receive Date: 20120111
  Receipt Date: 20120103
  Transmission Date: 20120608
  Serious: Yes (Hospitalization, Other)
  Sender: FDA-Public Use
  Company Number: US-BAYER-2011-053557

PATIENT
  Age: 28 Year
  Sex: Female
  Weight: 61 kg

DRUGS (11)
  1. SINGULAIR [Concomitant]
     Dosage: 10 MG, UNK
  2. YASMIN [Suspect]
     Indication: CONTRACEPTION
     Dosage: UNK
     Dates: start: 20070805, end: 20080617
  3. DROSPIRENONE AND ETHINYL ESTRADIOL [Suspect]
     Indication: CONTRACEPTION
     Dosage: UNK
     Dates: start: 20090922
  4. TIZANIDINE HCL [Concomitant]
     Dosage: 4 MG, UNK
  5. ACIDOPHILUS [Concomitant]
     Dosage: 500 MG, UNK
  6. PREVACID [Concomitant]
     Dosage: 20 MG, UNK
  7. ZYRTEC [Concomitant]
     Dosage: 10 MG, UNK
  8. APAP W/ CODEINE [Concomitant]
  9. AZITHROMYCIN [Concomitant]
     Dosage: 250 MG, UNK
  10. L-LYSINE [Concomitant]
     Dosage: 500 MG, UNK
  11. MIRENA [Concomitant]
     Dosage: UNK
     Dates: start: 20100108, end: 20100608

REACTIONS (9)
  - ANXIETY [None]
  - HEADACHE [None]
  - CHOLECYSTITIS CHRONIC [None]
  - VOMITING [None]
  - CHOLECYSTITIS [None]
  - ABDOMINAL PAIN UPPER [None]
  - ABDOMINAL PAIN [None]
  - HIATUS HERNIA [None]
  - MIGRAINE [None]
